FAERS Safety Report 20566192 (Version 1)
Quarter: 2022Q1

REPORT INFORMATION
  Report Type: Spontaneous
  Country: US (occurrence: US)
  Receive Date: 20220308
  Receipt Date: 20220308
  Transmission Date: 20220424
  Serious: No
  Sender: FDA-Public Use
  Company Number: US-PERRIGO-21US010728

PATIENT
  Age: 35 Year
  Sex: Female
  Weight: 67.574 kg

DRUGS (4)
  1. LORATADINE AND PSEUDOEPHEDRINE SULFATE [Suspect]
     Active Substance: LORATADINE\PSEUDOEPHEDRINE SULFATE
     Indication: Seasonal allergy
     Dosage: 1 TABLET AT 1800, SINGLE
     Route: 048
     Dates: start: 20210720, end: 20210720
  2. LORATADINE AND PSEUDOEPHEDRINE SULFATE [Suspect]
     Active Substance: LORATADINE\PSEUDOEPHEDRINE SULFATE
     Indication: Nasal congestion
     Dosage: 1 TABLET, SINGLE AT 1400
     Route: 048
     Dates: start: 20210731, end: 20210731
  3. LORATADINE AND PSEUDOEPHEDRINE SULFATE [Suspect]
     Active Substance: LORATADINE\PSEUDOEPHEDRINE SULFATE
     Indication: Periorbital swelling
  4. TYLENOL                            /00020001/ [Concomitant]
     Indication: Headache
     Dosage: UNKNOWN, UNKNOWN
     Route: 065
     Dates: start: 20210720, end: 20210720

REACTIONS (3)
  - Somnolence [Recovered/Resolved]
  - Fatigue [Recovered/Resolved]
  - Off label use [Recovered/Resolved]

NARRATIVE: CASE EVENT DATE: 20210720
